FAERS Safety Report 15700712 (Version 2)
Quarter: 2019Q1

REPORT INFORMATION
  Report Type: Spontaneous
  Country: US (occurrence: US)
  Receive Date: 20181207
  Receipt Date: 20190222
  Transmission Date: 20190417
  Serious: Yes (Other)
  Sender: FDA-Public Use
  Company Number: US-SA-2018SA331450

PATIENT
  Age: 69 Year
  Sex: Female
  Weight: 64 kg

DRUGS (15)
  1. TAXOTERE [Suspect]
     Active Substance: DOCETAXEL
     Indication: BREAST CANCER FEMALE
     Dosage: 40-45 MG QW
     Route: 042
     Dates: start: 20110303, end: 20110303
  2. LASIX [Concomitant]
     Active Substance: FUROSEMIDE
     Dosage: UNK
     Dates: start: 20040101
  3. POTASSIUM [Concomitant]
     Active Substance: POTASSIUM
     Dosage: UNK
     Dates: start: 20040101
  4. ALOXI [Concomitant]
     Active Substance: PALONOSETRON HYDROCHLORIDE
  5. FLEXERIL [CEFIXIME] [Concomitant]
     Active Substance: CEFIXIME
  6. TAXOTERE [Suspect]
     Active Substance: DOCETAXEL
     Dosage: 40-45 MG QW
     Route: 042
     Dates: start: 20110630, end: 20110630
  7. CYTOXAN [Concomitant]
     Active Substance: CYCLOPHOSPHAMIDE
  8. TAMOXIFEN [Concomitant]
     Active Substance: TAMOXIFEN
  9. NEOSAR [Concomitant]
     Active Substance: CYCLOPHOSPHAMIDE
  10. DECADRON [Concomitant]
     Active Substance: DEXAMETHASONE
  11. NEULASTA [Concomitant]
     Active Substance: PEGFILGRASTIM
  12. EXEMESTANE. [Concomitant]
     Active Substance: EXEMESTANE
     Dosage: UNK
  13. ADRIAMYCIN [Concomitant]
     Active Substance: DOXORUBICIN HYDROCHLORIDE
  14. IBUPROFEN. [Concomitant]
     Active Substance: IBUPROFEN
  15. AROMASIN [Concomitant]
     Active Substance: EXEMESTANE

REACTIONS (1)
  - Alopecia [Not Recovered/Not Resolved]

NARRATIVE: CASE EVENT DATE: 20111230
